FAERS Safety Report 7119680-5 (Version None)
Quarter: 2010Q4

REPORT INFORMATION
  Report Type: 
  Country: None (occurrence: None)
  Receive Date: 20101123
  Receipt Date: 20101117
  Transmission Date: 20110411
  Serious: Yes (Death)
  Sender: FDA-Public Use
  Company Number: US-PFIZER INC-2010153236

PATIENT
  Sex: Male

DRUGS (1)
  1. SUTENT [Suspect]
     Indication: ADRENAL CARCINOMA
     Dosage: 50 MG, 1X/DAY

REACTIONS (1)
  - DEATH [None]
